FAERS Safety Report 14799905 (Version 1)
Quarter: 2018Q2

REPORT INFORMATION
  Report Type: Spontaneous
  Country: GB (occurrence: GB)
  Receive Date: 20180424
  Receipt Date: 20180424
  Transmission Date: 20180711
  Serious: Yes (Death, Hospitalization, Other)
  Sender: FDA-Public Use
  Company Number: GB-SA-2018SA114162

PATIENT
  Age: 58 Year

DRUGS (17)
  1. NITROMIN [Concomitant]
     Indication: CHEST PAIN
     Route: 048
     Dates: start: 2004, end: 20180404
  2. RAMIPRIL. [Concomitant]
     Active Substance: RAMIPRIL
     Indication: MYOCARDIAL ISCHAEMIA
     Route: 048
     Dates: start: 2003, end: 20180404
  3. FERROUS SULFATE. [Concomitant]
     Active Substance: FERROUS SULFATE
     Indication: ANAEMIA
     Route: 048
     Dates: end: 20180404
  4. COCODAMOL [Concomitant]
     Active Substance: ACETAMINOPHEN\CODEINE PHOSPHATE
     Indication: MIGRAINE
  5. DILTIAZEM. [Concomitant]
     Active Substance: DILTIAZEM
     Indication: HYPERTENSION
     Route: 048
     Dates: start: 20161015, end: 20180404
  6. FOLIC ACID. [Concomitant]
     Active Substance: FOLIC ACID
     Indication: ANAEMIA
     Route: 048
     Dates: end: 20180404
  7. FUROSEMIDE. [Concomitant]
     Active Substance: FUROSEMIDE
     Indication: HYPERTENSION
     Route: 048
     Dates: start: 20170207, end: 20180404
  8. SIMVASTATIN. [Concomitant]
     Active Substance: SIMVASTATIN
     Indication: CEREBROVASCULAR ACCIDENT
     Route: 048
  9. FABRAZYME [Suspect]
     Active Substance: AGALSIDASE BETA
     Indication: FABRY^S DISEASE
     Route: 041
  10. COLECALCIFEROL [Concomitant]
     Active Substance: CHOLECALCIFEROL
     Indication: VITAMIN D DEFICIENCY
     Route: 048
  11. DILTIAZEM. [Concomitant]
     Active Substance: DILTIAZEM
     Indication: HYPERTENSION
     Route: 048
     Dates: start: 20161015, end: 20180404
  12. SERETIDE [Concomitant]
     Active Substance: FLUTICASONE PROPIONATE\SALMETEROL XINAFOATE
     Indication: OBSTRUCTIVE AIRWAYS DISORDER
     Dosage: DOSE:2 PUFF(S)
     Route: 055
     Dates: start: 2003, end: 20180404
  13. SALBUTAMOL [Concomitant]
     Active Substance: ALBUTEROL
     Indication: OBSTRUCTIVE AIRWAYS DISORDER
     Dosage: DOSE:2 PUFF(S)
     Route: 065
     Dates: start: 2003, end: 20180404
  14. GABAPENTIN. [Concomitant]
     Active Substance: GABAPENTIN
     Indication: PAIN
     Route: 048
     Dates: start: 2003, end: 20180404
  15. SODIUM VALPROATE [Concomitant]
     Active Substance: VALPROATE SODIUM
     Indication: CHEST PAIN
     Route: 048
     Dates: end: 20180404
  16. TIOTROPIUM [Concomitant]
     Active Substance: TIOTROPIUM
     Indication: MIGRAINE
     Route: 048
     Dates: start: 2007, end: 20180404
  17. WARFARIN SODIUM. [Concomitant]
     Active Substance: WARFARIN SODIUM
     Indication: CEREBROVASCULAR ACCIDENT
     Route: 048
     Dates: start: 20170203, end: 20180404

REACTIONS (8)
  - Bedridden [Unknown]
  - Haematochezia [Unknown]
  - Sepsis [Unknown]
  - Incontinence [Unknown]
  - Influenza [Unknown]
  - Diarrhoea [Unknown]
  - Atrial fibrillation [Unknown]
  - Death [Fatal]

NARRATIVE: CASE EVENT DATE: 20180327
